FAERS Safety Report 23242312 (Version 1)
Quarter: 2023Q4

REPORT INFORMATION
  Report Type: Spontaneous
  Country: US (occurrence: US)
  Receive Date: 20231129
  Receipt Date: 20231129
  Transmission Date: 20240110
  Serious: No
  Sender: FDA-Public Use
  Company Number: US-GENMAB-2023-01901

PATIENT
  Age: 45 Year
  Sex: Female

DRUGS (2)
  1. EPKINLY [Suspect]
     Active Substance: EPCORITAMAB-BYSP
     Indication: Marginal zone lymphoma refractory
     Dosage: 48 MILLIGRAM (OTHER FREQUENCY)
     Route: 058
     Dates: start: 20230703
  2. EPKINLY [Suspect]
     Active Substance: EPCORITAMAB-BYSP
     Dosage: 48 MILLIGRAM, WEEKLY (INJECT 48MG (0.8ML) EVERY 7 DAYS. DAY 1)
     Route: 058
     Dates: start: 20230814, end: 20231107

REACTIONS (2)
  - Therapy interrupted [Unknown]
  - Off label use [Unknown]

NARRATIVE: CASE EVENT DATE: 20230814
